FAERS Safety Report 4978974-X (Version None)
Quarter: 2006Q2

REPORT INFORMATION
  Report Type: 
  Country: None (occurrence: None)
  Receive Date: 20060417
  Receipt Date: 20060404
  Transmission Date: 20061013
  Serious: Yes (Other)
  Sender: FDA-Public Use
  Company Number: 2006048856

PATIENT
  Sex: Female

DRUGS (1)
  1. DEPO-PROVERA [Suspect]
     Indication: CONTRACEPTION
     Dosage: 150 MG (150 MG, FIRST INJECTION/TRIMESTRAL)
     Dates: start: 20021007, end: 20021007

REACTIONS (9)
  - ABORTION INCOMPLETE [None]
  - DEPRESSION [None]
  - DRUG EXPOSURE DURING PREGNANCY [None]
  - HAEMORRHAGE [None]
  - HYSTERECTOMY [None]
  - INTRA-UTERINE DEATH [None]
  - MALAISE [None]
  - PREGNANCY WITH INJECTABLE CONTRACEPTIVE [None]
  - VAGINAL HAEMORRHAGE [None]
